FAERS Safety Report 14746695 (Version 7)
Quarter: 2018Q3

REPORT INFORMATION
  Report Type: Report from Study
  Country: US (occurrence: US)
  Receive Date: 20180411
  Receipt Date: 20180924
  Transmission Date: 20181010
  Serious: Yes (Other)
  Sender: FDA-Public Use
  Company Number: US-PFIZER INC-2018147501

PATIENT
  Age: 44 Year
  Sex: Female

DRUGS (1)
  1. IBRANCE [Suspect]
     Active Substance: PALBOCICLIB
     Indication: BREAST CANCER FEMALE
     Dosage: 125 MG, DAILY
     Route: 048
     Dates: start: 20180323

REACTIONS (7)
  - Hot flush [Recovering/Resolving]
  - Arthralgia [Recovering/Resolving]
  - Fatigue [Recovering/Resolving]
  - White blood cell count decreased [Unknown]
  - Bone marrow failure [Recovering/Resolving]
  - Headache [Unknown]
  - Nausea [Recovering/Resolving]

NARRATIVE: CASE EVENT DATE: 2018
